FAERS Safety Report 9159462 (Version 3)
Quarter: 2013Q2

REPORT INFORMATION
  Report Type: Spontaneous
  Country: GR (occurrence: GR)
  Receive Date: 20130313
  Receipt Date: 20130412
  Transmission Date: 20140414
  Serious: Yes (Other)
  Sender: FDA-Public Use
  Company Number: PHHY2013GR024323

PATIENT
  Age: 60 Year
  Sex: Female

DRUGS (7)
  1. TASIGNA [Suspect]
     Indication: CHRONIC MYELOID LEUKAEMIA
     Dosage: 150 MG, QID
     Route: 048
     Dates: start: 20130125
  2. TASIGNA [Suspect]
     Dosage: 150 MG, TID
     Route: 048
     Dates: start: 20130228
  3. TASIGNA [Suspect]
     Dosage: 150 MG, BID
     Route: 048
     Dates: start: 20130307
  4. TASIGNA [Suspect]
     Dosage: 150 MG, QD
     Route: 048
  5. TASIGNA [Suspect]
     Dosage: 150 MG, BID
     Route: 048
  6. TASIGNA [Suspect]
     Dosage: 150 MG, QD
     Route: 048
  7. TASIGNA [Suspect]
     Dosage: 150 MG, BID FOR 2 DAYS

REACTIONS (3)
  - Cholelithiasis [Unknown]
  - Hepatitis [Unknown]
  - Gamma-glutamyltransferase increased [Unknown]
